FAERS Safety Report 19605601 (Version 3)
Quarter: 2022Q1

REPORT INFORMATION
  Report Type: Spontaneous
  Country: US (occurrence: US)
  Receive Date: 20210723
  Receipt Date: 20220106
  Transmission Date: 20220424
  Serious: No
  Sender: FDA-Public Use
  Company Number: US-BIOMARINAP-US-2021-137632

PATIENT
  Age: 14 Year
  Sex: Male

DRUGS (3)
  1. ALDURAZYME [Suspect]
     Active Substance: LARONIDASE
     Indication: Mucopolysaccharidosis I
     Dosage: 23.2 MILLIGRAM, QW
     Route: 042
     Dates: start: 20200321
  2. ALDURAZYME [Suspect]
     Active Substance: LARONIDASE
     Dosage: 23.2 MILLIGRAM, QW
     Route: 042
  3. ALDURAZYME [Suspect]
     Active Substance: LARONIDASE
     Dosage: 20.3 MILLIGRAM, QW
     Route: 042

REACTIONS (3)
  - Burning sensation [Recovering/Resolving]
  - Thermal burn [Unknown]
  - Product dose omission issue [Unknown]

NARRATIVE: CASE EVENT DATE: 20210628
